FAERS Safety Report 13681078 (Version 3)
Quarter: 2019Q3

REPORT INFORMATION
  Report Type: Spontaneous
  Country: US (occurrence: US)
  Receive Date: 20170623
  Receipt Date: 20190819
  Transmission Date: 20191004
  Serious: Yes (Other)
  Sender: FDA-Public Use
  Company Number: US-TEVA-761471ACC

PATIENT
  Sex: Female
  Weight: 56.3 kg

DRUGS (2)
  1. PARAGARD T 380A [Suspect]
     Active Substance: COPPER
     Dates: start: 20170104, end: 20170303
  2. PRENATAL [Concomitant]
     Active Substance: VITAMINS

REACTIONS (3)
  - Live birth [Unknown]
  - Breech presentation [Unknown]
  - Maternal exposure during pregnancy [Unknown]
